FAERS Safety Report 14683195 (Version 1)
Quarter: 2018Q1

REPORT INFORMATION
  Report Type: Report from Study
  Country: US (occurrence: US)
  Receive Date: 20180327
  Receipt Date: 20180327
  Transmission Date: 20180509
  Serious: Yes (Other)
  Sender: FDA-Public Use
  Company Number: US-ROCHE-2090659

PATIENT
  Age: 7 Year
  Sex: Female
  Weight: 24.2 kg

DRUGS (5)
  1. GAMUNEX-C [Concomitant]
     Active Substance: HUMAN IMMUNOGLOBULIN G
     Dosage: INJECT AS DIRECTED
     Route: 065
  2. NUTROPIN AQ [Suspect]
     Active Substance: SOMATROPIN
     Indication: GROWTH HORMONE DEFICIENCY
     Route: 058
  3. NUTROPIN AQ [Suspect]
     Active Substance: SOMATROPIN
     Indication: TURNER^S SYNDROME
     Dosage: NUSPIN 10
     Route: 058
  4. PAXIL [Concomitant]
     Active Substance: PAROXETINE HYDROCHLORIDE
  5. SYNTHROID [Concomitant]
     Active Substance: LEVOTHYROXINE SODIUM
     Indication: HYPOTHYROIDISM

REACTIONS (9)
  - Blood thyroid stimulating hormone increased [Unknown]
  - Constipation [Unknown]
  - Middle insomnia [Unknown]
  - Tachycardia [Unknown]
  - Asthenia [Unknown]
  - Gait disturbance [Unknown]
  - Abdominal distension [Unknown]
  - Fatigue [Unknown]
  - Red reflex abnormal [Unknown]

NARRATIVE: CASE EVENT DATE: 20131216
